FAERS Safety Report 7688261-7 (Version None)
Quarter: 2011Q3

REPORT INFORMATION
  Report Type: 
  Country: None (occurrence: None)
  Receive Date: 20110817
  Receipt Date: 20110815
  Transmission Date: 20111222
  Serious: Yes (Death, Other)
  Sender: FDA-Public Use
  Company Number: JP-B.I. PHARMACEUTICALS,INC./RIDGEFIELD-2011-BP-19838NB

PATIENT
  Age: 91 Year
  Sex: Female

DRUGS (2)
  1. TICLOPIDINE HCL [Suspect]
     Dosage: 200 MG
     Route: 048
  2. PRADAXA [Suspect]
     Dosage: 220 NR
     Route: 048
     Dates: start: 20110714, end: 20110731

REACTIONS (4)
  - MELAENA [None]
  - ANAEMIA [None]
  - GASTROINTESTINAL HAEMORRHAGE [None]
  - MENINGITIS [None]
